FAERS Safety Report 14684672 (Version 1)
Quarter: 2018Q1

REPORT INFORMATION
  Report Type: Spontaneous
  Country: US (occurrence: US)
  Receive Date: 20180327
  Receipt Date: 20180327
  Transmission Date: 20180509
  Serious: No
  Sender: FDA-Public Use
  Company Number: US-TEVA-2018-US-854102

PATIENT

DRUGS (1)
  1. METHYLPHENIDATE HYDROCHLORIDE 54 MG -ACTAVIS PHARMA [Suspect]
     Active Substance: METHYLPHENIDATE HYDROCHLORIDE

REACTIONS (4)
  - Depression [Unknown]
  - Drug effect decreased [Unknown]
  - Mood swings [Unknown]
  - Psychomotor hyperactivity [Unknown]
